FAERS Safety Report 9536613 (Version 1)
Quarter: 2013Q2

REPORT INFORMATION
  Report Type: Spontaneous
  Country: US (occurrence: None)
  Receive Date: 20130507
  Receipt Date: 20130507
  Transmission Date: 20140414
  Serious: No
  Sender: FDA-Public Use
  Company Number: PHEH2012US017758

PATIENT
  Age: 10 Year
  Sex: Male

DRUGS (7)
  1. AFINITOR (RAD) [Suspect]
     Indication: TUBEROUS SCLEROSIS
     Route: 048
     Dates: start: 20110616
  2. DEPAKOTE (VALPROATE SEMISODIUM) [Concomitant]
  3. ZONEGRAN (ZONISAMIDE) [Concomitant]
  4. KEPPRA (LEVETIRACETAM) [Concomitant]
  5. SYNTHROID (LEVOTHYROXINE SODIUM) [Concomitant]
  6. RISPERDAL (RISPERIDONE) [Concomitant]
  7. CLONIDINE (CLONIDINE) [Concomitant]

REACTIONS (3)
  - Abnormal behaviour [None]
  - Neoplasm [None]
  - Malignant neoplasm progression [None]
